FAERS Safety Report 15480682 (Version 10)
Quarter: 2019Q1

REPORT INFORMATION
  Report Type: Report from Study
  Country: CO (occurrence: CO)
  Receive Date: 20181010
  Receipt Date: 20190227
  Transmission Date: 20190417
  Serious: Yes (Other)
  Sender: FDA-Public Use
  Company Number: PHHY2018CO119391

PATIENT
  Sex: Female
  Weight: 74 kg

DRUGS (12)
  1. LOSARTAN. [Suspect]
     Active Substance: LOSARTAN
     Indication: HYPERTENSION
     Dosage: UNK UNK, QD (ONCE EVERY 24 HOURS)
     Route: 048
  2. PANTOPRAZOLE [Suspect]
     Active Substance: PANTOPRAZOLE
     Indication: GASTRIC PH DECREASED
     Dosage: 40 MG, QD
     Route: 048
  3. HYDROCHLOROTHIAZIDE. [Concomitant]
     Active Substance: HYDROCHLOROTHIAZIDE
     Indication: HYPERTENSION
     Dosage: 25 MG, QD (ONCE EVERY 24 HOUR)
     Route: 048
  4. LEVOTHYROXINE. [Concomitant]
     Active Substance: LEVOTHYROXINE
     Indication: THYROID DISORDER
     Dosage: 50 MG, QD (ABOUT 3 YEARS AGO)
     Route: 048
  5. HYDROCHLOORTHIAZIDE [Concomitant]
     Active Substance: HYDROCHLOROTHIAZIDE
     Indication: FLUID RETENTION
     Dosage: 20 MG, QD
     Route: 048
  6. VOTRIENT [Suspect]
     Active Substance: PAZOPANIB HYDROCHLORIDE
     Dosage: 600 MG, QD
     Route: 048
     Dates: end: 201806
  7. ATORVASTATIN [Suspect]
     Active Substance: ATORVASTATIN
     Dosage: 20 MG, QD (ONCE EVERY 24 HOURS )
     Route: 048
  8. EUTIROX [Concomitant]
     Active Substance: LEVOTHYROXINE SODIUM
     Indication: THYROID DISORDER
     Dosage: 50 MG, QD (ONCE EVERY 24 HOURS)
     Route: 048
  9. HYDROCHLOROTHIAZIDE. [Concomitant]
     Active Substance: HYDROCHLOROTHIAZIDE
     Dosage: 25 MG, QD (ONCE EVERY 24 HOUR)
     Route: 048
  10. ATORVASTATIN [Suspect]
     Active Substance: ATORVASTATIN
     Indication: BRAIN OEDEMA
     Dosage: 40 MG, QD (ONCE EVERY 24 HOURS )
     Route: 048
  11. VOTRIENT [Suspect]
     Active Substance: PAZOPANIB HYDROCHLORIDE
     Indication: METASTATIC RENAL CELL CARCINOMA
     Dosage: 800 MG, QD
     Route: 048
     Dates: start: 201703
  12. PANTOPRAZOLE [Suspect]
     Active Substance: PANTOPRAZOLE
     Indication: DYSPEPSIA

REACTIONS (13)
  - Brain oedema [Unknown]
  - Metastatic renal cell carcinoma [Unknown]
  - Feeling abnormal [Unknown]
  - Malaise [Unknown]
  - Noninfective gingivitis [Recovering/Resolving]
  - Nausea [Unknown]
  - Pain in extremity [Unknown]
  - Bone neoplasm [Recovering/Resolving]
  - Recurrent cancer [Unknown]
  - Decreased appetite [Unknown]
  - Back pain [Unknown]
  - Decreased immune responsiveness [Unknown]
  - Peritoneal neoplasm [Recovered/Resolved]
